FAERS Safety Report 5755651-9 (Version None)
Quarter: 2008Q2

REPORT INFORMATION
  Report Type: 
  Country: None (occurrence: None)
  Receive Date: 20080602
  Receipt Date: 20080521
  Transmission Date: 20081010
  Serious: Yes (Death, Other)
  Sender: FDA-Public Use
  Company Number: NZ-ROCHE-566206

PATIENT
  Age: 55 Year
  Sex: Male

DRUGS (2)
  1. XELODA [Suspect]
     Dosage: TAKEN DAILY.
     Route: 065
  2. OXALIPLATIN [Concomitant]
     Dosage: RECEIVED ONE DOSE

REACTIONS (4)
  - DEATH [None]
  - DIARRHOEA [None]
  - HEPATIC FAILURE [None]
  - RENAL FAILURE [None]
